FAERS Safety Report 14545432 (Version 2)
Quarter: 2018Q1

REPORT INFORMATION
  Report Type: Report from Study
  Country: AU (occurrence: AU)
  Receive Date: 20180219
  Receipt Date: 20180320
  Transmission Date: 20180509
  Serious: Yes (Other)
  Sender: FDA-Public Use
  Company Number: AU-MYLANLABS-2017M1016339

PATIENT
  Age: 25 Year
  Sex: Male
  Weight: 96 kg

DRUGS (5)
  1. CLOZARIL [Suspect]
     Active Substance: CLOZAPINE
     Indication: SCHIZOPHRENIA
     Dosage: 150 MG, UNK
     Route: 048
     Dates: start: 20131017, end: 201311
  2. LURASIDONE [Concomitant]
     Active Substance: LURASIDONE
     Indication: PRODUCT USED FOR UNKNOWN INDICATION
     Dosage: UNK
  3. ESCITALOPRAM [Concomitant]
     Active Substance: ESCITALOPRAM OXALATE
     Indication: PRODUCT USED FOR UNKNOWN INDICATION
     Dosage: UNK
  4. CLOZARIL [Suspect]
     Active Substance: CLOZAPINE
     Dosage: 75 UNK, UNK
     Route: 048
     Dates: start: 20180212
  5. OLANZAPINE. [Concomitant]
     Active Substance: OLANZAPINE
     Indication: PRODUCT USED FOR UNKNOWN INDICATION
     Dosage: 10 MG, BID

REACTIONS (8)
  - C-reactive protein decreased [Unknown]
  - Schizophrenia [Unknown]
  - Mitral valve incompetence [Unknown]
  - Body surface area increased [Unknown]
  - Loss of personal independence in daily activities [Unknown]
  - Chest pain [Unknown]
  - Left atrial dilatation [Unknown]
  - Myocarditis [Unknown]

NARRATIVE: CASE EVENT DATE: 2013
